FAERS Safety Report 7414322-3 (Version None)
Quarter: 2011Q2

REPORT INFORMATION
  Report Type: 
  Country: None (occurrence: None)
  Receive Date: 20110414
  Receipt Date: 20110412
  Transmission Date: 20111010
  Serious: Yes (Other)
  Sender: FDA-Public Use
  Company Number: US-PFIZER INC-2011080704

PATIENT
  Sex: Male
  Weight: 63.492 kg

DRUGS (1)
  1. CELEBREX [Suspect]
     Indication: ARTHROPATHY
     Dosage: UNK
     Route: 048

REACTIONS (2)
  - PRURITUS [None]
  - HYPERSENSITIVITY [None]
